FAERS Safety Report 12582131 (Version 1)
Quarter: 2016Q3

REPORT INFORMATION
  Report Type: Report from Study
  Country: US (occurrence: US)
  Receive Date: 20160722
  Receipt Date: 20160722
  Transmission Date: 20161109
  Serious: Yes (Death)
  Sender: FDA-Public Use
  Company Number: US-CIPLA LTD.-2016US09818

PATIENT

DRUGS (4)
  1. SORAFENIB [Suspect]
     Active Substance: SORAFENIB
     Dosage: 400 MG, DAILY
     Route: 048
  2. SORAFENIB [Suspect]
     Active Substance: SORAFENIB
     Indication: HEPATOCELLULAR CARCINOMA
     Dosage: 400 MG, BID
     Route: 048
  3. CISPLATIN. [Suspect]
     Active Substance: CISPLATIN
     Indication: HEPATOCELLULAR CARCINOMA
     Dosage: 60 MG/M2, INFUSED FOR 30-45 MINS, EVERY 6 WEEKS CYCLE
     Route: 013
  4. CARBOPLATIN. [Suspect]
     Active Substance: CARBOPLATIN
     Indication: HEPATOCELLULAR CARCINOMA
     Dosage: AUC 6  INFUSED FOR 30-45 MINS, EVERY 6 WEEKS CYCLE
     Route: 013

REACTIONS (1)
  - Pulmonary embolism [Fatal]
